FAERS Safety Report 23745203 (Version 2)
Quarter: 2024Q2

REPORT INFORMATION
  Report Type: Report from Study
  Country: US (occurrence: US)
  Receive Date: 20240416
  Receipt Date: 20240514
  Transmission Date: 20240716
  Serious: No
  Sender: FDA-Public Use
  Company Number: US-ACADIA PHARMACEUTICALS INC.-ACA-2024-PIM-001412

PATIENT
  Age: 80 Year
  Sex: Male

DRUGS (1)
  1. NUPLAZID [Suspect]
     Active Substance: PIMAVANSERIN TARTRATE
     Indication: Parkinson^s disease psychosis
     Dosage: 34 MILLIGRAM, QD
     Route: 048

REACTIONS (6)
  - Product dose omission issue [Not Recovered/Not Resolved]
  - Hypersomnia [Unknown]
  - Adverse drug reaction [Unknown]
  - Crying [Unknown]
  - Screaming [Unknown]
  - Hallucination [Unknown]

NARRATIVE: CASE EVENT DATE: 20240320
